FAERS Safety Report 4592309-6 (Version None)
Quarter: 2005Q1

REPORT INFORMATION
  Report Type: 
  Country: None (occurrence: None)
  Receive Date: 20050228
  Receipt Date: 20041201
  Transmission Date: 20050727
  Serious: Yes (Hospitalization)
  Sender: FDA-Public Use
  Company Number: US-BRISTOL-MYERS SQUIBB COMPANY-12781308

PATIENT
  Sex: Male
  Weight: 40 kg

DRUGS (1)
  1. ABILIFY [Suspect]
     Indication: BIPOLAR I DISORDER
     Dosage: 10 MG SEP-2004; THEN INCREASED TO 22.5 MG/DAY
     Route: 048
     Dates: start: 20040901

REACTIONS (1)
  - HYPOTHYROIDISM [None]
